FAERS Safety Report 16610627 (Version 1)
Quarter: 2019Q3

REPORT INFORMATION
  Report Type: Spontaneous
  Country: US (occurrence: US)
  Receive Date: 20190722
  Receipt Date: 20190722
  Transmission Date: 20191004
  Serious: Yes (Hospitalization, Other)
  Sender: FDA-Public Use
  Company Number: US-BAUSCH-BL-2019-020637

PATIENT
  Age: 81 Year
  Sex: Female

DRUGS (1)
  1. PLENVU [Suspect]
     Active Substance: ASCORBIC ACID\POLYETHYLENE GLYCOL 3350\POTASSIUM CHLORIDE\SODIUM ASCORBATE\SODIUM CHLORIDE\SODIUM SULFATE
     Indication: BOWEL PREPARATION
     Route: 065

REACTIONS (12)
  - Amnesia [Unknown]
  - Speech disorder [Recovered/Resolved]
  - Electrolyte depletion [Unknown]
  - Frequent bowel movements [Unknown]
  - Hyponatraemia [Unknown]
  - Tremor [Unknown]
  - Pyrexia [Unknown]
  - Seizure [Unknown]
  - Agitation [Unknown]
  - Aspiration [Unknown]
  - Vomiting [Recovered/Resolved]
  - Faeces discoloured [Not Recovered/Not Resolved]
